FAERS Safety Report 10565210 (Version 1)
Quarter: 2014Q4

REPORT INFORMATION
  Report Type: Spontaneous
  Country: AT (occurrence: None)
  Receive Date: 20141103
  Receipt Date: 20141103
  Transmission Date: 20150529
  Serious: Yes (Hospitalization)
  Sender: FDA-Public Use
  Company Number: AT-017489

PATIENT
  Age: 46 Year
  Sex: Female

DRUGS (1)
  1. PICOPREP [Suspect]
     Active Substance: CITRIC ACID MONOHYDRATE\MAGNESIUM OXIDE\SODIUM PICOSULFATE
     Indication: BOWEL PREPARATION
     Dates: start: 20131216

REACTIONS (6)
  - Jaw fracture [None]
  - Tooth fracture [None]
  - Fall [None]
  - Nausea [None]
  - Circulatory collapse [None]
  - Deafness traumatic [None]

NARRATIVE: CASE EVENT DATE: 20131214
